FAERS Safety Report 5752236-5 (Version None)
Quarter: 2008Q2

REPORT INFORMATION
  Report Type: 
  Country: None (occurrence: None)
  Receive Date: 20080529
  Receipt Date: 20080527
  Transmission Date: 20081010
  Serious: Yes (Hospitalization)
  Sender: FDA-Public Use
  Company Number: US-JNJFOC-20080505328

PATIENT
  Age: 19 Year
  Sex: Male

DRUGS (2)
  1. IBUPROFEN [Suspect]
     Indication: CONTUSION
  2. ALBUTEROL [Concomitant]
     Indication: ASTHMA EXERCISE INDUCED

REACTIONS (1)
  - RETROPERITONEAL HAEMATOMA [None]
